FAERS Safety Report 19081606 (Version 4)
Quarter: 2021Q2

REPORT INFORMATION
  Report Type: Other
  Country: IL (occurrence: IL)
  Receive Date: 20210401
  Receipt Date: 20210512
  Transmission Date: 20210717
  Serious: Yes (Hospitalization)
  Sender: FDA-Public Use
  Company Number: IL-ROCHE-2795812

PATIENT
  Age: 63 Year
  Sex: Male

DRUGS (1)
  1. ALECENSA [Suspect]
     Active Substance: ALECTINIB HYDROCHLORIDE
     Indication: NON-SMALL CELL LUNG CANCER
     Route: 048
     Dates: start: 20210302

REACTIONS (12)
  - Pneumonia [Not Recovered/Not Resolved]
  - Asthenia [Unknown]
  - Metastases to liver [Unknown]
  - Back pain [Unknown]
  - Vomiting [Not Recovered/Not Resolved]
  - Back pain [Not Recovered/Not Resolved]
  - Chills [Not Recovered/Not Resolved]
  - Fall [Unknown]
  - Acute kidney injury [Not Recovered/Not Resolved]
  - Pneumonia [Unknown]
  - Blood creatinine decreased [Unknown]
  - Blood creatinine increased [Not Recovered/Not Resolved]

NARRATIVE: CASE EVENT DATE: 20210315
